FAERS Safety Report 7909414 (Version 5)
Quarter: 2014Q4

REPORT INFORMATION
  Report Type: Spontaneous
  Country: US (occurrence: US)
  Receive Date: 20110421
  Receipt Date: 20141126
  Transmission Date: 20150529
  Serious: Yes (Other)
  Sender: FDA-Public Use
  Company Number: US-ASTRAZENECA-2010SE11300

PATIENT
  Age: 51 Year
  Sex: Female
  Weight: 77.1 kg

DRUGS (14)
  1. NORCO [Concomitant]
     Active Substance: ACETAMINOPHEN\HYDROCODONE BITARTRATE
     Indication: ARTHRALGIA
     Dates: start: 2012
  2. TOPROL XL [Suspect]
     Active Substance: METOPROLOL SUCCINATE
     Indication: HEART RATE INCREASED
     Route: 048
  3. XANAX [Concomitant]
     Active Substance: ALPRAZOLAM
     Indication: PANIC ATTACK
     Dates: start: 2012, end: 2012
  4. ESTRADIOL. [Concomitant]
     Active Substance: ESTRADIOL
     Indication: POSTOPERATIVE CARE
     Dates: start: 2001
  5. TOPROL XL [Suspect]
     Active Substance: METOPROLOL SUCCINATE
     Indication: HEART RATE INCREASED
     Route: 048
  6. TOPROL XL [Suspect]
     Active Substance: METOPROLOL SUCCINATE
     Indication: HEART RATE INCREASED
     Route: 048
  7. ASPIRIN. [Concomitant]
     Active Substance: ASPIRIN
     Indication: PROPHYLAXIS
  8. TRAMADOL [Concomitant]
     Active Substance: TRAMADOL
     Indication: ARTHRALGIA
     Route: 048
     Dates: start: 2011
  9. OMEPRAZOLE. [Suspect]
     Active Substance: OMEPRAZOLE
     Indication: GASTROOESOPHAGEAL REFLUX DISEASE
     Route: 048
     Dates: start: 2013
  10. MVI CENTRUM SILVER WOMEN [Concomitant]
     Dosage: 50 PLUS, DAILY
     Dates: start: 201410
  11. VITAMIN C [Concomitant]
     Active Substance: ASCORBIC ACID
     Dates: start: 201410
  12. XANAX [Concomitant]
     Active Substance: ALPRAZOLAM
     Indication: PANIC ATTACK
     Dates: start: 2010
  13. XANAX [Concomitant]
     Active Substance: ALPRAZOLAM
     Indication: PANIC ATTACK
     Dates: start: 2012
  14. VITAMIN C [Concomitant]
     Active Substance: ASCORBIC ACID
     Dates: start: 201410

REACTIONS (32)
  - Ligament rupture [Unknown]
  - Arthropathy [Unknown]
  - Adverse event [Unknown]
  - Synovial cyst [Unknown]
  - Heart rate increased [Unknown]
  - Tendon rupture [Unknown]
  - Throat tightness [Unknown]
  - Condition aggravated [Unknown]
  - Joint swelling [Not Recovered/Not Resolved]
  - Tremor [Unknown]
  - Insomnia [Unknown]
  - Fracture [Unknown]
  - Seizure [Unknown]
  - Weight decreased [Unknown]
  - Spinal deformity [Unknown]
  - Headache [Unknown]
  - Nausea [Unknown]
  - Skin burning sensation [Unknown]
  - Weight increased [Unknown]
  - Fatigue [Unknown]
  - Organ failure [Unknown]
  - Feeding disorder [Unknown]
  - Meniscus injury [Unknown]
  - Gastrooesophageal reflux disease [Unknown]
  - Chest pain [Unknown]
  - Fall [Unknown]
  - Blood pressure increased [Unknown]
  - Intervertebral disc protrusion [Unknown]
  - Panic attack [Unknown]
  - Hypoaesthesia [Unknown]
  - Meniscus cyst [Unknown]
  - Hallucination [Unknown]

NARRATIVE: CASE EVENT DATE: 2000
